FAERS Safety Report 25428876 (Version 2)
Quarter: 2025Q4

REPORT INFORMATION
  Report Type: Report from Study
  Country: US (occurrence: US)
  Receive Date: 20250612
  Receipt Date: 20251221
  Transmission Date: 20260117
  Serious: Yes (Hospitalization)
  Sender: SAREPTA THERAPEUTICS
  Company Number: US-SAREPTA THERAPEUTICS INC.-SRP2025-005975

PATIENT
  Age: 5 Year
  Sex: Male
  Weight: 17 kg

DRUGS (3)
  1. ELEVIDYS [Suspect]
     Active Substance: DELANDISTROGENE MOXEPARVOVEC-ROKL
     Indication: Duchenne muscular dystrophy
     Dosage: 170 MILLILITER, SINGLE
     Dates: start: 20250408, end: 20250408
  2. EMFLAZA [Concomitant]
     Active Substance: DEFLAZACORT
     Indication: Product used for unknown indication
     Dosage: 0.7 MILLILITER, QD (22.75 MG/ML, 16 MG DAILY, 0.94 MG/KG/DAY)
  3. PREDNISOLONE [Concomitant]
     Active Substance: PREDNISOLONE
     Indication: Product used for unknown indication
     Dosage: 6 MILLILITER, QD (15 MG/5ML, 18MG/DAY, 1 MG/KG/DAY)

REACTIONS (8)
  - Streptococcal bacteraemia [Recovering/Resolving]
  - Sigmoid sinus thrombosis [Recovering/Resolving]
  - Cavernous sinus thrombosis [Recovering/Resolving]
  - Mastoiditis [Recovering/Resolving]
  - Constipation [Recovered/Resolved]
  - Headache [Recovered/Resolved]
  - Pyrexia [Recovered/Resolved]
  - Ear infection [Unknown]

NARRATIVE: CASE EVENT DATE: 20250401
